FAERS Safety Report 8545886-4 (Version None)
Quarter: 2012Q3

REPORT INFORMATION
  Report Type: 
  Country: None (occurrence: None)
  Receive Date: 20120727
  Receipt Date: 20111116
  Transmission Date: 20120928
  Serious: No
  Sender: FDA-Public Use
  Company Number: US-ASTRAZENECA-2011SE70084

PATIENT
  Age: 47 Year
  Sex: Female
  Weight: 62.6 kg

DRUGS (8)
  1. SEROQUEL XR [Suspect]
     Dosage: HALF IN THE AFTERNOON AND HALF AT NIGHT.
     Route: 048
  2. XANAX [Concomitant]
     Indication: PANIC ATTACK
  3. SPIRIVA [Concomitant]
  4. SEROQUEL XR [Suspect]
     Indication: SLEEP DISORDER
     Route: 048
  5. SEROQUEL XR [Suspect]
     Dosage: HALF IN THE AFTERNOON AND HALF AT NIGHT.
     Route: 048
  6. XANAX [Concomitant]
     Indication: ANXIETY
  7. SEROQUEL XR [Suspect]
     Indication: ANXIETY
     Route: 048
  8. CYMBALTA [Concomitant]
     Indication: DEPRESSION

REACTIONS (5)
  - MALAISE [None]
  - WRONG TECHNIQUE IN DRUG USAGE PROCESS [None]
  - DEPRESSION [None]
  - DRUG DOSE OMISSION [None]
  - OFF LABEL USE [None]
